FAERS Safety Report 6822610-4 (Version None)
Quarter: 2010Q3

REPORT INFORMATION
  Report Type: 
  Country: None (occurrence: None)
  Receive Date: 20100708
  Receipt Date: 20100628
  Transmission Date: 20110219
  Serious: Yes (Hospitalization, Other)
  Sender: FDA-Public Use
  Company Number: FR-ELI_LILLY_AND_COMPANY-FR201006007187

PATIENT
  Age: 50 Year
  Sex: Female

DRUGS (4)
  1. PROZAC [Suspect]
     Dosage: 40 MG, DAILY (1/D)
     Route: 048
  2. PLAQUENIL [Concomitant]
     Route: 048
  3. CELEBREX [Concomitant]
     Dosage: 400 MG, DAILY (1/D)
     Route: 048
     Dates: end: 20100422
  4. LORAZEPAM [Concomitant]
     Route: 048

REACTIONS (3)
  - ELECTROCARDIOGRAM QT PROLONGED [None]
  - MYOSITIS [None]
  - SYNCOPE [None]
